FAERS Safety Report 23659608 (Version 2)
Quarter: 2024Q2

REPORT INFORMATION
  Report Type: Spontaneous
  Country: US (occurrence: US)
  Receive Date: 20240321
  Receipt Date: 20240418
  Transmission Date: 20240716
  Serious: Yes (Other)
  Sender: FDA-Public Use
  Company Number: US-BEH-2024170077

PATIENT
  Age: 25 Year
  Sex: Male
  Weight: 88.889 kg

DRUGS (10)
  1. IDELVION [Suspect]
     Active Substance: COAGULATION FACTOR IX RECOMBINANT HUMAN
     Indication: Factor IX deficiency
     Dosage: 4000 INTERNATIONAL UNIT, QW(EVERY 7 DAYS)
     Route: 042
     Dates: start: 202401
  2. IDELVION [Suspect]
     Active Substance: COAGULATION FACTOR IX RECOMBINANT HUMAN
     Indication: Factor IX deficiency
     Dosage: 4000 INTERNATIONAL UNIT, QW(EVERY 7 DAYS)
     Route: 042
     Dates: start: 202401
  3. IDELVION [Suspect]
     Active Substance: COAGULATION FACTOR IX RECOMBINANT HUMAN
     Indication: Prophylaxis
     Dosage: 4000 INTERNATIONAL UNIT, PRN
     Route: 042
     Dates: start: 202401
  4. IDELVION [Suspect]
     Active Substance: COAGULATION FACTOR IX RECOMBINANT HUMAN
     Indication: Prophylaxis
     Dosage: 4000 INTERNATIONAL UNIT, PRN
     Route: 042
     Dates: start: 202401
  5. IDELVION [Suspect]
     Active Substance: COAGULATION FACTOR IX RECOMBINANT HUMAN
     Dosage: 8000 IU, QW
     Route: 065
     Dates: start: 2022
  6. IDELVION [Suspect]
     Active Substance: COAGULATION FACTOR IX RECOMBINANT HUMAN
     Dosage: 8000 IU, QW
     Route: 065
     Dates: start: 2022
  7. IDELVION [Suspect]
     Active Substance: COAGULATION FACTOR IX RECOMBINANT HUMAN
     Dosage: 4000 IU, QW
     Route: 065
     Dates: start: 2023
  8. IDELVION [Suspect]
     Active Substance: COAGULATION FACTOR IX RECOMBINANT HUMAN
     Dosage: 4000 IU, QW
     Route: 065
     Dates: start: 2023
  9. IDELVION [Suspect]
     Active Substance: COAGULATION FACTOR IX RECOMBINANT HUMAN
     Dosage: 6000 IU, QW
     Route: 065
     Dates: start: 2024
  10. IDELVION [Suspect]
     Active Substance: COAGULATION FACTOR IX RECOMBINANT HUMAN
     Dosage: 6000 IU, QW
     Route: 065
     Dates: start: 2024

REACTIONS (1)
  - Muscle haemorrhage [Recovered/Resolved]

NARRATIVE: CASE EVENT DATE: 20240301
